FAERS Safety Report 5042847-7 (Version None)
Quarter: 2006Q3

REPORT INFORMATION
  Report Type: 
  Country: None (occurrence: None)
  Receive Date: 20060705
  Receipt Date: 20051216
  Transmission Date: 20061208
  Serious: Yes (Hospitalization)
  Sender: FDA-Public Use
  Company Number: JP-JPN-A20053113

PATIENT
  Age: 24 Year
  Sex: Female

DRUGS (5)
  1. PAXIL [Suspect]
     Indication: PANIC DISORDER
     Route: 048
     Dates: start: 20050520, end: 20060308
  2. LORAZEPAM [Concomitant]
     Indication: PANIC ATTACK
     Dosage: 1.5MG PER DAY
     Route: 048
     Dates: start: 20050204, end: 20050901
  3. DIHYDROERGOTAMINE MESYLATE [Concomitant]
     Indication: ORTHOSTATIC HYPOTENSION
     Dosage: 3MG PER DAY
     Route: 048
     Dates: start: 20050401, end: 20050901
  4. GASMOTIN [Concomitant]
     Indication: NAUSEA
     Dosage: 2.5MG PER DAY
     Route: 048
     Dates: start: 20050526, end: 20050901
  5. ALPRAZOLAM [Concomitant]
     Route: 048
     Dates: start: 20050106, end: 20050714

REACTIONS (2)
  - CERVIX DISORDER [None]
  - DRUG EXPOSURE DURING PREGNANCY [None]
